FAERS Safety Report 8261373-5 (Version None)
Quarter: 2012Q2

REPORT INFORMATION
  Report Type: 
  Country: None (occurrence: None)
  Receive Date: 20120405
  Receipt Date: 20120326
  Transmission Date: 20120825
  Serious: Yes (Hospitalization, Other)
  Sender: FDA-Public Use
  Company Number: US-PFIZER INC-2012046669

PATIENT
  Sex: Female
  Weight: 68 kg

DRUGS (3)
  1. LYRICA [Suspect]
     Indication: TRIGEMINAL NEURALGIA
     Dosage: UNK, 2X/DAY
  2. NEURONTIN [Suspect]
     Dosage: UNK
  3. NEURONTIN [Suspect]
     Indication: TRIGEMINAL NEURALGIA
     Dosage: UNK
     Route: 048
     Dates: start: 20080101

REACTIONS (6)
  - FEELING ABNORMAL [None]
  - DRUG INEFFECTIVE [None]
  - TRIGEMINAL NEURALGIA [None]
  - PAIN [None]
  - WEIGHT DECREASED [None]
  - MASTICATION DISORDER [None]
